FAERS Safety Report 19874526 (Version 1)
Quarter: 2021Q3

REPORT INFORMATION
  Report Type: Spontaneous
  Country: US (occurrence: US)
  Receive Date: 20210922
  Receipt Date: 20210922
  Transmission Date: 20211014
  Serious: No
  Sender: FDA-Public Use
  Company Number: US-SA-2021SA309894

PATIENT
  Age: 67 Year
  Sex: Female

DRUGS (3)
  1. ALLEGRA?D 24 HOUR ALLERGY AND CONGESTION [Suspect]
     Active Substance: FEXOFENADINE HYDROCHLORIDE\PSEUDOEPHEDRINE HYDROCHLORIDE
     Indication: SINUS DISORDER
     Dosage: 1 DF, QD
     Route: 065
  2. BETAINE HCL [Concomitant]
     Indication: ABDOMINAL DISCOMFORT
     Route: 065
  3. POTASSIUM [Concomitant]
     Active Substance: POTASSIUM
     Route: 065

REACTIONS (1)
  - Product residue present [Unknown]
